FAERS Safety Report 16981484 (Version 1)
Quarter: 2019Q4

REPORT INFORMATION
  Report Type: Spontaneous
  Country: US (occurrence: US)
  Receive Date: 20191031
  Receipt Date: 20191031
  Transmission Date: 20200122
  Serious: No
  Sender: FDA-Public Use
  Company Number: US-ABBVIE-19K-163-2853724-00

PATIENT

DRUGS (2)
  1. CLARITHROMYCIN. [Suspect]
     Active Substance: CLARITHROMYCIN
     Indication: PRODUCT USED FOR UNKNOWN INDICATION
     Route: 065
  2. LYRICA [Suspect]
     Active Substance: PREGABALIN
     Indication: FIBROMYALGIA
     Dosage: 1 CAP(S) 2 TIMES A DAY FOR 30 DAYS?DISPENSE: 60?REFILL: 12
     Route: 048
     Dates: start: 20190708

REACTIONS (2)
  - Drug hypersensitivity [Unknown]
  - Dysgeusia [Unknown]
